FAERS Safety Report 6505851-5 (Version None)
Quarter: 2009Q4

REPORT INFORMATION
  Report Type: 
  Country: None (occurrence: None)
  Receive Date: 20091218
  Receipt Date: 20091208
  Transmission Date: 20100525
  Serious: Yes (Other)
  Sender: FDA-Public Use
  Company Number: US-ELI_LILLY_AND_COMPANY-US200912002074

PATIENT
  Age: 39 Year
  Sex: Male

DRUGS (3)
  1. CYMBALTA [Suspect]
     Indication: DEPRESSION
     Dosage: 60 MG, DAILY (1/D)
     Dates: start: 20090601, end: 20090101
  2. XANAX [Concomitant]
  3. TYLENOL [Concomitant]

REACTIONS (2)
  - ROAD TRAFFIC ACCIDENT [None]
  - SOMNAMBULISM [None]
